FAERS Safety Report 9186219 (Version 1)
Quarter: 2013Q1

REPORT INFORMATION
  Report Type: Spontaneous
  Country: US (occurrence: None)
  Receive Date: 20120628
  Receipt Date: 20120628
  Transmission Date: 20140127
  Serious: Yes (Other)
  Sender: FDA-Public Use
  Company Number: PHHY2011US65855

PATIENT
  Age: 69 Year
  Sex: Female

DRUGS (2)
  1. RECLAST [Suspect]
     Indication: OSTEOPOROSIS
     Dosage: 5 MG (YEARLY), UNK, INTRARENOUS
  2. UNSPECIFIED INGREDIENT [Concomitant]

REACTIONS (5)
  - Uveitis [None]
  - Rhinorrhoea [None]
  - Iridocyclitis [None]
  - Ocular hyperaemia [None]
  - Eye pain [None]
